FAERS Safety Report 9676170 (Version 1)
Quarter: 2013Q4

REPORT INFORMATION
  Report Type: Spontaneous
  Country: NO (occurrence: NO)
  Receive Date: 20131107
  Receipt Date: 20131107
  Transmission Date: 20140711
  Serious: Yes (Death)
  Sender: FDA-Public Use
  Company Number: NO-TEVA-440808ISR

PATIENT
  Age: 86 Year
  Sex: Female

DRUGS (24)
  1. METHOTREXATE [Suspect]
     Indication: RHEUMATOID ARTHRITIS
     Route: 048
  2. METHOTREXATE [Suspect]
     Dosage: 15 MILLIGRAM DAILY; FOR 3-4 DAYS
     Route: 048
  3. WEIFAPENIN [Concomitant]
     Indication: PNEUMONIA
     Dosage: CHANGED TO CEFOTAXIME AFTER ADMITTANCE
     Route: 048
     Dates: start: 20131002, end: 20131003
  4. COSOPT [Concomitant]
     Route: 047
  5. CARDURAN CR [Concomitant]
  6. NEXIUM [Concomitant]
  7. ALBYL-E [Concomitant]
  8. LEVAXIN [Concomitant]
  9. NOBLIGAN [Concomitant]
  10. ZOPICLONE ACTAVIS [Concomitant]
  11. FURIX [Concomitant]
  12. ATROVENT [Concomitant]
     Route: 055
  13. CEFOTAXIME [Concomitant]
     Indication: PNEUMONIA
     Route: 042
     Dates: start: 20131003, end: 20131010
  14. RENITEC COMP [Concomitant]
  15. VENTOLINE [Concomitant]
     Route: 055
  16. ZOLOFT [Concomitant]
  17. ADALAT [Concomitant]
  18. LOPERAMID MYLAN [Concomitant]
  19. PARACET [Concomitant]
  20. NORSPAN [Concomitant]
  21. PREDNISOLON [Concomitant]
  22. PHYSIOTENS [Concomitant]
  23. SIMVASTATIN [Concomitant]
  24. UNILOC [Concomitant]

REACTIONS (4)
  - Neutropenia [Fatal]
  - Death [Fatal]
  - Medication error [Fatal]
  - Overdose [Fatal]
